FAERS Safety Report 8934411 (Version 8)
Quarter: 2013Q3

REPORT INFORMATION
  Report Type: Spontaneous
  Country: US (occurrence: US)
  Receive Date: 20121128
  Receipt Date: 20130919
  Transmission Date: 20140515
  Serious: Yes (Hospitalization, Disabling, Other)
  Sender: FDA-Public Use
  Company Number: US-009507513-1206USA05393

PATIENT
  Sex: Female
  Weight: 72.56 kg

DRUGS (5)
  1. FOSAMAX [Suspect]
     Indication: OSTEOPENIA
     Dosage: 70 MG, QW
     Route: 048
     Dates: start: 200304, end: 200706
  2. FOSAMAX PLUS D [Suspect]
     Indication: OSTEOPENIA
     Dosage: 70/2800 QW
     Route: 048
     Dates: start: 200706, end: 201011
  3. CALCIUM (UNSPECIFIED) [Concomitant]
     Indication: OSTEOPENIA
  4. VITAMIN D (UNSPECIFIED) [Concomitant]
     Indication: OSTEOPENIA
  5. CORTICOSTEROIDS (UNSPECIFIED) [Concomitant]
     Dosage: UNK
     Dates: start: 1997, end: 2010

REACTIONS (70)
  - Jaw operation [Unknown]
  - Breast lump removal [Unknown]
  - Cataract operation [Unknown]
  - Bone debridement [Unknown]
  - Pneumothorax [Recovering/Resolving]
  - Surgery [Unknown]
  - Abscess [Unknown]
  - Myocardial infarction [Unknown]
  - Mastectomy [Unknown]
  - Computerised tomogram [Unknown]
  - Osteonecrosis of jaw [Not Recovered/Not Resolved]
  - Osteomyelitis [Not Recovered/Not Resolved]
  - Infection [Unknown]
  - Axillary mass [Unknown]
  - Fibrosis [Unknown]
  - Urinary incontinence [Unknown]
  - Fungal infection [Unknown]
  - Blood glucose abnormal [Unknown]
  - Osteoporosis [Unknown]
  - Emphysema [Unknown]
  - Asthma [Unknown]
  - Cough [Unknown]
  - Dysphonia [Unknown]
  - Sleep apnoea syndrome [Unknown]
  - Restless legs syndrome [Unknown]
  - Oral disorder [Unknown]
  - Thyroid neoplasm [Unknown]
  - Salivary gland mass [Unknown]
  - Bone disorder [Unknown]
  - Fistula [Unknown]
  - Goitre [Unknown]
  - Osteoarthritis [Unknown]
  - Intervertebral disc protrusion [Unknown]
  - Hypoglycaemia [Unknown]
  - Chronic obstructive pulmonary disease [Not Recovered/Not Resolved]
  - Staphylococcal infection [Unknown]
  - Staphylococcal infection [Unknown]
  - Alveolar osteitis [Unknown]
  - Tongue coated [Unknown]
  - Tooth extraction [Unknown]
  - Dental caries [Unknown]
  - Oral infection [Unknown]
  - Impaired healing [Unknown]
  - Fistula [Unknown]
  - Device related infection [Unknown]
  - Catheter removal [Unknown]
  - Catheterisation venous [Unknown]
  - Tooth fracture [Unknown]
  - Oral pain [Unknown]
  - Oral fungal infection [Recovering/Resolving]
  - Loose tooth [Unknown]
  - Gingival disorder [Unknown]
  - Staphylococcal infection [Unknown]
  - Rhinoplasty [Unknown]
  - Gastrointestinal disorder [Unknown]
  - Edentulous [Not Recovered/Not Resolved]
  - Tooth extraction [Unknown]
  - Mastication disorder [Unknown]
  - Breath odour [Unknown]
  - Dental caries [Unknown]
  - Exostosis of jaw [Unknown]
  - Osteosclerosis [Unknown]
  - Procedural complication [Unknown]
  - Coronary arterial stent insertion [Unknown]
  - Radiotherapy [Unknown]
  - Nephrolithiasis [Unknown]
  - Nasal congestion [Unknown]
  - Skin disorder [Unknown]
  - Dysgeusia [Unknown]
  - Dizziness [Unknown]
